FAERS Safety Report 5395466-7 (Version None)
Quarter: 2007Q3

REPORT INFORMATION
  Report Type: 
  Country: None (occurrence: None)
  Receive Date: 20070724
  Receipt Date: 20070716
  Transmission Date: 20080115
  Serious: Yes (Life-Threatening, Hospitalization)
  Sender: FDA-Public Use
  Company Number: B0479651A

PATIENT
  Age: 49 Year
  Sex: Male

DRUGS (9)
  1. KIVEXA [Suspect]
     Indication: HIV INFECTION
     Dosage: 4TAB PER DAY
     Route: 048
     Dates: start: 20070415, end: 20070613
  2. KALETRA [Suspect]
     Indication: HIV INFECTION
     Dosage: 1TAB PER DAY
     Route: 048
     Dates: start: 20070415, end: 20070613
  3. VIDEX [Suspect]
     Indication: HIV INFECTION
     Route: 048
     Dates: start: 19971001, end: 20061209
  4. ZERIT [Suspect]
     Indication: HIV INFECTION
     Route: 048
     Dates: start: 19980401, end: 20061209
  5. VIRACEPT [Suspect]
     Indication: HIV INFECTION
     Route: 048
     Dates: start: 19980401, end: 20061209
  6. BACTRIM [Concomitant]
     Route: 065
     Dates: start: 19890101
  7. LIPANTHYL [Concomitant]
     Route: 065
     Dates: end: 20070613
  8. RIVOTRIL [Concomitant]
     Indication: NEUROPATHY
     Route: 065
  9. LAROXYL [Concomitant]
     Indication: NEUROPATHY
     Route: 065

REACTIONS (24)
  - ANOREXIA [None]
  - ASCITES [None]
  - ASTHENIA [None]
  - BLOOD LACTIC ACID INCREASED [None]
  - CACHEXIA [None]
  - CONSTIPATION [None]
  - DIABETES MELLITUS [None]
  - HAEMOGLOBIN DECREASED [None]
  - HAEMOLYSIS [None]
  - HAPTOGLOBIN INCREASED [None]
  - HYPOVOLAEMIA [None]
  - KETOACIDOSIS [None]
  - LACTIC ACIDOSIS [None]
  - LIPASE INCREASED [None]
  - NAUSEA [None]
  - PANCREATITIS ACUTE [None]
  - POLYDIPSIA [None]
  - POLYURIA [None]
  - PYREXIA [None]
  - RENAL FAILURE [None]
  - SINUS TACHYCARDIA [None]
  - SPEECH DISORDER [None]
  - VOMITING [None]
  - WEIGHT DECREASED [None]
